FAERS Safety Report 13998896 (Version 2)
Quarter: 2017Q4

REPORT INFORMATION
  Report Type: Spontaneous
  Country: AU (occurrence: AU)
  Receive Date: 20170921
  Receipt Date: 20171027
  Transmission Date: 20180321
  Serious: Yes (Other)
  Sender: FDA-Public Use
  Company Number: AU-BEH-2017083792

PATIENT
  Age: 58 Year
  Sex: Male

DRUGS (2)
  1. HUMAN IMMUNOGLOBULIN IV (INN) [Suspect]
     Active Substance: HUMAN IMMUNOGLOBULIN G
     Indication: APLASIA PURE RED CELL
     Dosage: 2000 MG/KG, TOT (IN 2 DIVIDED DOSES, 3 DAYS APART)
     Route: 042
  2. HUMAN IMMUNOGLOBULIN IV (INN) [Suspect]
     Active Substance: HUMAN IMMUNOGLOBULIN G
     Indication: PARVOVIRUS B19 INFECTION

REACTIONS (3)
  - Splenic rupture [Unknown]
  - Splenic haemorrhage [Unknown]
  - Abdominal pain [Unknown]
